FAERS Safety Report 5280901-5 (Version None)
Quarter: 2007Q1

REPORT INFORMATION
  Report Type: 
  Country: None (occurrence: None)
  Receive Date: 20070329
  Receipt Date: 20070315
  Transmission Date: 20070707
  Serious: Yes (Other)
  Sender: FDA-Public Use
  Company Number: US-SHR-US-2006-026570

PATIENT
  Age: 64 Year
  Sex: Female

DRUGS (5)
  1. BETASERON [Suspect]
     Indication: RELAPSING-REMITTING MULTIPLE SCLEROSIS
     Dosage: 8 MIU, EVERY 2D
     Route: 058
     Dates: start: 19910101
  2. XANAX [Concomitant]
     Dosage: UNK TAB(S), AS REQ'D
  3. LEVOXYL [Concomitant]
     Dosage: 50 A?G, 1X/DAY
  4. HYDROCHLOROTHIAZIDE [Concomitant]
     Dosage: UNK, 1X/DAY
  5. ENABLEX [Concomitant]
     Dosage: 7.5 MG, 1X/DAY

REACTIONS (4)
  - BLOOD PRESSURE INCREASED [None]
  - CHEST DISCOMFORT [None]
  - MULTIPLE SCLEROSIS [None]
  - TRANSIENT ISCHAEMIC ATTACK [None]
